FAERS Safety Report 7419836-8 (Version None)
Quarter: 2011Q2

REPORT INFORMATION
  Report Type: 
  Country: None (occurrence: None)
  Receive Date: 20110418
  Receipt Date: 20110405
  Transmission Date: 20111010
  Serious: Yes (Hospitalization)
  Sender: FDA-Public Use
  Company Number: US-JNJFOC-20110404360

PATIENT
  Sex: Female
  Weight: 64.41 kg

DRUGS (2)
  1. ORTHO EVRA [Suspect]
     Indication: DYSMENORRHOEA
     Route: 062
  2. ORTHO EVRA [Suspect]
     Indication: MOOD SWINGS
     Route: 062

REACTIONS (3)
  - RIGHT VENTRICULAR FAILURE [None]
  - PULMONARY EMBOLISM [None]
  - OFF LABEL USE [None]
